FAERS Safety Report 5828434-9 (Version None)
Quarter: 2008Q3

REPORT INFORMATION
  Report Type: 
  Country: None (occurrence: None)
  Receive Date: 20080731
  Receipt Date: 20080724
  Transmission Date: 20090109
  Serious: Yes (Death)
  Sender: FDA-Public Use
  Company Number: GB-AVENTIS-200817129GDDC

PATIENT
  Age: 74 Year
  Sex: Male
  Weight: 75 kg

DRUGS (8)
  1. TAXOTERE [Suspect]
     Indication: PROSTATE CANCER
     Dosage: DOSE: UNK
     Route: 041
  2. STILBOESTROL [Concomitant]
     Route: 048
     Dates: start: 20051001, end: 20060905
  3. ZOLADEX [Concomitant]
     Dosage: DOSE: UNK
     Route: 058
     Dates: start: 20060601
  4. WARFARIN SODIUM [Concomitant]
     Dosage: DOSE: UNK
     Route: 048
     Dates: start: 20060725, end: 20060918
  5. BENDROFLUMETHIAZIDE [Concomitant]
  6. LANSOPRAZOLE [Concomitant]
  7. ALBUTEROL [Concomitant]
  8. SERETIDE [Concomitant]

REACTIONS (7)
  - AORTIC VALVE CALCIFICATION [None]
  - CHEST PAIN [None]
  - DEEP VEIN THROMBOSIS [None]
  - DYSPNOEA [None]
  - MYOCARDIAL ISCHAEMIA [None]
  - PULMONARY EMBOLISM [None]
  - SYNCOPE [None]
